FAERS Safety Report 9536684 (Version 1)
Quarter: 2013Q3

REPORT INFORMATION
  Report Type: Spontaneous
  Country: BR (occurrence: BR)
  Receive Date: 20130919
  Receipt Date: 20130919
  Transmission Date: 20140515
  Serious: Yes (Other)
  Sender: FDA-Public Use
  Company Number: BR-JNJFOC-20130907122

PATIENT
  Age: 35 Year
  Sex: Female

DRUGS (11)
  1. TOPIRAMATE [Suspect]
     Indication: ALCOHOL ABUSE
     Route: 065
  2. TOPIRAMATE [Suspect]
     Indication: ALCOHOL ABUSE
     Route: 065
  3. TOPIRAMATE [Suspect]
     Indication: BORDERLINE PERSONALITY DISORDER
     Route: 065
  4. TOPIRAMATE [Suspect]
     Indication: BORDERLINE PERSONALITY DISORDER
     Route: 065
  5. TOPIRAMATE [Suspect]
     Indication: BULIMIA NERVOSA
     Route: 065
  6. TOPIRAMATE [Suspect]
     Indication: BULIMIA NERVOSA
     Route: 065
  7. TOPIRAMATE [Suspect]
     Indication: CYCLOTHYMIC DISORDER
     Route: 065
  8. TOPIRAMATE [Suspect]
     Indication: CYCLOTHYMIC DISORDER
     Route: 065
  9. TOPIRAMATE [Suspect]
     Indication: INSOMNIA
     Route: 065
  10. TOPIRAMATE [Suspect]
     Indication: INSOMNIA
     Route: 065
  11. CLONAZEPAM [Concomitant]
     Indication: INSOMNIA
     Route: 065

REACTIONS (2)
  - Visual impairment [Unknown]
  - Off label use [Unknown]
